FAERS Safety Report 24860238 (Version 2)
Quarter: 2025Q1

REPORT INFORMATION
  Report Type: Spontaneous
  Country: US (occurrence: US)
  Receive Date: 20250120
  Receipt Date: 20250201
  Transmission Date: 20250409
  Serious: No
  Sender: ROCHE
  Company Number: US-ROCHE-10000184031

PATIENT
  Sex: Female

DRUGS (16)
  1. XOLAIR PFS [Suspect]
     Active Substance: OMALIZUMAB
     Indication: Asthma
     Dosage: STRENGTH: 75 MG/0.5 ML
     Route: 058
  2. XOLAIR PFS [Suspect]
     Active Substance: OMALIZUMAB
  3. VITAMIN D [Concomitant]
     Active Substance: VITAMIN D NOS
  4. SYMBICORT [Concomitant]
     Active Substance: BUDESONIDE\FORMOTEROL FUMARATE DIHYDRATE
  5. PEPCID [Concomitant]
     Active Substance: FAMOTIDINE
  6. BUPRENORPHINE [Concomitant]
     Active Substance: BUPRENORPHINE
  7. CYCLOBENZAPRINE [Concomitant]
     Active Substance: CYCLOBENZAPRINE
  8. TOPIRAMATE [Concomitant]
     Active Substance: TOPIRAMATE
  9. ALBUTEROL [Concomitant]
     Active Substance: ALBUTEROL
  10. ALPRAZOLAM [Concomitant]
     Active Substance: ALPRAZOLAM
  11. AMLODIPINE [Concomitant]
     Active Substance: AMLODIPINE BESYLATE
  12. DICLOFENAC [Concomitant]
     Active Substance: DICLOFENAC
  13. EPINEPHRINE [Concomitant]
     Active Substance: EPINEPHRINE
  14. NABUMETONE [Concomitant]
     Active Substance: NABUMETONE
  15. ONDANSETRON [Concomitant]
     Active Substance: ONDANSETRON
  16. OXYCODONE [Concomitant]
     Active Substance: OXYCODONE

REACTIONS (1)
  - Anxiety [Not Recovered/Not Resolved]
